FAERS Safety Report 6469053-3 (Version None)
Quarter: 2009Q4

REPORT INFORMATION
  Report Type: 
  Country: None (occurrence: None)
  Receive Date: 20091203
  Receipt Date: 20091130
  Transmission Date: 20100525
  Serious: Yes (Death, Other)
  Sender: FDA-Public Use
  Company Number: PHEH2009US16928

PATIENT
  Sex: Male

DRUGS (15)
  1. EXJADE [Suspect]
     Indication: IRON OVERLOAD
     Dosage: 2500 MG DAILY
     Route: 048
     Dates: start: 20070601
  2. EXJADE [Suspect]
     Dosage: 3500 MG DAILY
     Route: 048
     Dates: start: 20071206
  3. EXJADE [Suspect]
     Dosage: 4000 MG DAILY
     Route: 048
     Dates: start: 20090224
  4. BLOOD TRANSFUSION, AUXILIARY PRODUCTS [Concomitant]
  5. COUMADIN [Concomitant]
  6. LISINOPRIL [Concomitant]
  7. DECITABINE [Concomitant]
     Indication: MYELODYSPLASTIC SYNDROME
  8. VISTARIL [Concomitant]
  9. DILAUDID [Concomitant]
  10. COMPAZINE [Concomitant]
  11. MIRALAX [Concomitant]
  12. LOVENOX [Concomitant]
  13. AMOXICILLIN [Concomitant]
  14. KEFLEX [Concomitant]
  15. LEVAQUIN [Concomitant]

REACTIONS (2)
  - DEATH [None]
  - LOCALISED INFECTION [None]
